FAERS Safety Report 25582013 (Version 2)
Quarter: 2025Q4

REPORT INFORMATION
  Report Type: Spontaneous
  Country: US (occurrence: US)
  Receive Date: 20250719
  Receipt Date: 20251001
  Transmission Date: 20260118
  Serious: No
  Sender: SANOFI AVENTIS
  Company Number: US-SA-2025SA202612

PATIENT
  Age: 66 Year
  Sex: Male

DRUGS (4)
  1. ELOCTATE [Suspect]
     Active Substance: EFMOROCTOCOG ALFA
     Indication: Factor VIII deficiency
     Dosage: 4320 IU (3888-4752) SLOW IV PUSH ONCE EVERY 5 DAYS AND AS NEEDED DAILY
     Route: 042
     Dates: start: 202504
  2. ELOCTATE [Suspect]
     Active Substance: EFMOROCTOCOG ALFA
     Indication: Factor VIII deficiency
     Dosage: 4320 IU (3888-4752) SLOW IV PUSH ONCE EVERY 5 DAYS AND AS NEEDED DAILY
     Route: 042
     Dates: start: 202504
  3. ELOCTATE [Suspect]
     Active Substance: EFMOROCTOCOG ALFA
     Dosage: 4200 U SLOW IV PUSH ONCE EVERY 5 DAYS AND DAILY AS NEEDED
     Route: 042
     Dates: start: 2025
  4. ELOCTATE [Suspect]
     Active Substance: EFMOROCTOCOG ALFA
     Dosage: 4200 U SLOW IV PUSH ONCE EVERY 5 DAYS AND DAILY AS NEEDED
     Route: 042
     Dates: start: 2025

REACTIONS (2)
  - Haemorrhage [Recovered/Resolved]
  - Spontaneous haemorrhage [Unknown]

NARRATIVE: CASE EVENT DATE: 20250623
